FAERS Safety Report 12705976 (Version 33)
Quarter: 2019Q3

REPORT INFORMATION
  Report Type: Report from Study
  Country: CA (occurrence: CA)
  Receive Date: 20160901
  Receipt Date: 20190917
  Transmission Date: 20191004
  Serious: Yes (Other)
  Sender: FDA-Public Use
  Company Number: CA-BRISTOL-MYERS SQUIBB COMPANY-BMS-2016-019300

PATIENT
  Age: 65 Year
  Sex: Female

DRUGS (10)
  1. ABATACEPT [Suspect]
     Active Substance: ABATACEPT
     Indication: RHEUMATOID ARTHRITIS
     Dosage: 750 MILLIGRAM, Q4WK
     Route: 042
     Dates: start: 20141218
  2. PLAQUENIL                          /00072602/ [Concomitant]
     Active Substance: HYDROXYCHLOROQUINE DIPHOSPHATE
     Indication: PRODUCT USED FOR UNKNOWN INDICATION
     Route: 065
  3. VIMOVO [Concomitant]
     Active Substance: ESOMEPRAZOLE MAGNESIUM\NAPROXEN
     Indication: PRODUCT USED FOR UNKNOWN INDICATION
     Route: 065
  4. METHOTREXATE. [Concomitant]
     Active Substance: METHOTREXATE
     Indication: PRODUCT USED FOR UNKNOWN INDICATION
     Route: 065
  5. VENTOLIN [Concomitant]
     Active Substance: ALBUTEROL SULFATE
     Indication: PRODUCT USED FOR UNKNOWN INDICATION
     Route: 065
  6. FOLIC ACID. [Concomitant]
     Active Substance: FOLIC ACID
     Indication: PRODUCT USED FOR UNKNOWN INDICATION
     Route: 065
  7. TRAZODONE [Concomitant]
     Active Substance: TRAZODONE HYDROCHLORIDE
     Indication: PRODUCT USED FOR UNKNOWN INDICATION
     Route: 065
  8. PANTOLOC                           /01263201/ [Concomitant]
     Active Substance: PANTOPRAZOLE SODIUM
     Indication: PRODUCT USED FOR UNKNOWN INDICATION
     Dosage: UNK
     Route: 065
  9. SYNTHROID [Concomitant]
     Active Substance: LEVOTHYROXINE SODIUM
     Indication: PRODUCT USED FOR UNKNOWN INDICATION
     Route: 065
  10. CELEXA [Concomitant]
     Active Substance: CITALOPRAM HYDROBROMIDE
     Indication: PRODUCT USED FOR UNKNOWN INDICATION
     Route: 065

REACTIONS (37)
  - Pneumonia [Unknown]
  - Pulmonary fibrosis [Unknown]
  - Type 2 diabetes mellitus [Unknown]
  - Dyspnoea [Not Recovered/Not Resolved]
  - Chest pain [Not Recovered/Not Resolved]
  - Arthralgia [Unknown]
  - Erythema [Not Recovered/Not Resolved]
  - Night sweats [Unknown]
  - Dysphonia [Unknown]
  - Malaise [Unknown]
  - Abdominal pain upper [Recovered/Resolved]
  - Mass [Recovered/Resolved]
  - Blood glucose increased [Unknown]
  - Acne [Not Recovered/Not Resolved]
  - Gait disturbance [Unknown]
  - Lung disorder [Unknown]
  - Sunburn [Recovered/Resolved]
  - Pyrexia [Unknown]
  - Stomatitis [Unknown]
  - Lymphadenopathy [Unknown]
  - Cough [Unknown]
  - Chest discomfort [Unknown]
  - Inappropriate schedule of product administration [Recovered/Resolved]
  - Lung neoplasm malignant [Not Recovered/Not Resolved]
  - Chills [Unknown]
  - Musculoskeletal pain [Unknown]
  - Rash [Unknown]
  - Rhinorrhoea [Unknown]
  - Nasopharyngitis [Recovering/Resolving]
  - Lung infection [Recovered/Resolved]
  - Mouth ulceration [Unknown]
  - Nail disorder [Recovering/Resolving]
  - Rosacea [Recovering/Resolving]
  - Fatigue [Unknown]
  - Non-cardiac chest pain [Not Recovered/Not Resolved]
  - Hypoaesthesia [Unknown]
  - Macule [Recovered/Resolved]

NARRATIVE: CASE EVENT DATE: 2016
